FAERS Safety Report 5101221-5 (Version None)
Quarter: 2006Q3

REPORT INFORMATION
  Report Type: 
  Country: None (occurrence: None)
  Receive Date: 20060911
  Receipt Date: 20060904
  Transmission Date: 20061208
  Serious: Yes (Other)
  Sender: FDA-Public Use
  Company Number: 2006AP04119

PATIENT
  Sex: Female

DRUGS (2)
  1. OMEPRAZOLE [Suspect]
     Indication: PNEUMONIA ASPIRATION
     Route: 042
  2. MEROPEN [Suspect]
     Route: 042

REACTIONS (1)
  - RHABDOMYOLYSIS [None]
